FAERS Safety Report 4587598-8 (Version None)
Quarter: 2005Q1

REPORT INFORMATION
  Report Type: 
  Country: None (occurrence: None)
  Receive Date: 20050125
  Receipt Date: 20041105
  Transmission Date: 20050727
  Serious: No
  Sender: FDA-Public Use
  Company Number: USA040978234

PATIENT
  Age: 77 Year
  Sex: Female
  Weight: 55 kg

DRUGS (1)
  1. FORTEO [Suspect]
     Indication: OSTEOPOROSIS
     Dosage: 20 UG/ 1 DAY
     Dates: start: 20040701

REACTIONS (4)
  - BACK INJURY [None]
  - BACK PAIN [None]
  - LOSS OF CONTROL OF LEGS [None]
  - TREMOR [None]
